FAERS Safety Report 10210569 (Version 2)
Quarter: 2014Q2

REPORT INFORMATION
  Report Type: Spontaneous
  Country: FR (occurrence: FR)
  Receive Date: 20140602
  Receipt Date: 20140611
  Transmission Date: 20141212
  Serious: Yes (Hospitalization, Other)
  Sender: FDA-Public Use
  Company Number: FR-PFIZER INC-2014147324

PATIENT
  Age: 70 Year
  Sex: Female

DRUGS (4)
  1. XALATAN [Suspect]
     Indication: GLAUCOMA
     Dosage: UNK,1XDAY IN EVENING
     Route: 047
  2. DIAMOX [Suspect]
     Indication: GLAUCOMA
     Dosage: 3 DF, DAILY
     Route: 048
  3. AZOPT [Suspect]
     Indication: GLAUCOMA
     Dosage: 1 DROP/ 2XDAY
     Route: 047
  4. LEVOTHYROX [Concomitant]
     Dosage: 0.5 DF, DAILY
     Route: 048

REACTIONS (12)
  - Retinal vein occlusion [Recovered/Resolved]
  - Intraocular pressure increased [Unknown]
  - Chest pain [Unknown]
  - Drug ineffective [Unknown]
  - Blood pressure increased [Unknown]
  - Colour blindness acquired [Unknown]
  - Dizziness [Unknown]
  - Fall [Unknown]
  - Cough [Unknown]
  - Alopecia [Unknown]
  - Dyspnoea [Unknown]
  - Visual impairment [Unknown]
